FAERS Safety Report 7471896-4 (Version None)
Quarter: 2011Q2

REPORT INFORMATION
  Report Type: 
  Country: None (occurrence: None)
  Receive Date: 20110511
  Receipt Date: 20100625
  Transmission Date: 20111010
  Serious: No
  Sender: FDA-Public Use
  Company Number: A0868722A

PATIENT
  Sex: Female

DRUGS (3)
  1. TYKERB [Suspect]
     Dosage: 1250MG PER DAY
     Route: 065
     Dates: start: 20100414
  2. XELODA [Suspect]
     Route: 065
     Dates: start: 20100101, end: 20100101
  3. UNSPECIFIED MEDICATION [Concomitant]

REACTIONS (6)
  - MUSCULOSKELETAL STIFFNESS [None]
  - DIZZINESS [None]
  - VOMITING [None]
  - PAIN IN EXTREMITY [None]
  - DIARRHOEA [None]
  - UNDERDOSE [None]
